FAERS Safety Report 24417315 (Version 2)
Quarter: 2024Q4

REPORT INFORMATION
  Report Type: Spontaneous
  Country: CZ (occurrence: CZ)
  Receive Date: 20241009
  Receipt Date: 20241029
  Transmission Date: 20250115
  Serious: Yes (Other)
  Sender: FRESENIUS KABI
  Company Number: CZ-BAXTER-2024BAX024532

PATIENT
  Age: 44 Year
  Sex: Male

DRUGS (31)
  1. OXALIPLATIN [Suspect]
     Active Substance: OXALIPLATIN
     Indication: Hodgkin^s disease recurrent
     Dosage: UNK, 1XR-DHAOX REGIMEN
     Route: 065
  2. OXALIPLATIN [Suspect]
     Active Substance: OXALIPLATIN
     Indication: Hodgkin^s disease
  3. ACETAMINOPHEN [Suspect]
     Active Substance: ACETAMINOPHEN
     Indication: Hodgkin^s disease refractory
     Dosage: UNK, 5XR-CHOEP REGIMEN
     Route: 065
  4. ACETAMINOPHEN [Suspect]
     Active Substance: ACETAMINOPHEN
     Indication: Hodgkin^s disease recurrent
  5. VINORELBINE [Suspect]
     Active Substance: VINORELBINE TARTRATE
     Indication: Hodgkin^s disease refractory
     Dosage: UNK, 2XIGEV REGIMEN
     Route: 065
  6. VINORELBINE [Suspect]
     Active Substance: VINORELBINE TARTRATE
     Indication: Hodgkin^s disease recurrent
     Dosage: UNK, 20 MG / 1 EA
     Route: 065
  7. CYTARABINE [Suspect]
     Active Substance: CYTARABINE
     Indication: Hodgkin^s disease recurrent
     Dosage: UNK, 1XR-DHAP, 1XR-DHAOX REGIMEN
     Route: 065
  8. CYTARABINE [Suspect]
     Active Substance: CYTARABINE
     Indication: Hodgkin^s disease refractory
  9. BRENTUXIMAB VEDOTIN [Suspect]
     Active Substance: BRENTUXIMAB VEDOTIN
     Indication: Hodgkin^s disease refractory
     Dosage: UNK
     Route: 065
  10. BRENTUXIMAB VEDOTIN [Suspect]
     Active Substance: BRENTUXIMAB VEDOTIN
     Indication: Hodgkin^s disease recurrent
  11. DOXORUBICIN [Suspect]
     Active Substance: DOXORUBICIN
     Indication: Hodgkin^s disease refractory
     Dosage: UNK, 1XR-CHOP REGIMEN
     Route: 065
  12. DOXORUBICIN [Suspect]
     Active Substance: DOXORUBICIN
     Indication: Hodgkin^s disease recurrent
  13. CISPLATIN [Suspect]
     Active Substance: CISPLATIN
     Indication: Hodgkin^s disease recurrent
     Dosage: UNK, 1XR-DHAP REGIMEN
     Route: 065
  14. CISPLATIN [Suspect]
     Active Substance: CISPLATIN
     Indication: Hodgkin^s disease refractory
  15. IFOSFAMIDE [Suspect]
     Active Substance: IFOSFAMIDE
     Indication: Hodgkin^s disease refractory
     Dosage: UNK, 2XIGEV REGIMEN
     Route: 065
  16. IFOSFAMIDE [Suspect]
     Active Substance: IFOSFAMIDE
     Indication: Hodgkin^s disease recurrent
  17. CYCLOPHOSPHAMIDE [Suspect]
     Active Substance: CYCLOPHOSPHAMIDE
     Indication: Hodgkin^s disease refractory
     Dosage: UNK, 1XR-CHOP REGIMEN
     Route: 065
  18. CYCLOPHOSPHAMIDE [Suspect]
     Active Substance: CYCLOPHOSPHAMIDE
     Indication: Hodgkin^s disease recurrent
  19. RITUXIMAB [Suspect]
     Active Substance: RITUXIMAB
     Indication: Hodgkin^s disease recurrent
     Dosage: UNK, 1XR-CHOP, 5XR-CHOEP, 1XR-DHAP, 1XR-DHAOX REGIMEN?FOA-SOLUTION FOR INFUSION
     Route: 065
  20. RITUXIMAB [Suspect]
     Active Substance: RITUXIMAB
     Indication: Hodgkin^s disease refractory
     Dosage: UNK, 10MG/1ML, DOSAGE REGIMEN: SOLUTION FOR INFUSION ?FOA-SOLUTION FOR INFUSION
     Route: 065
  21. GENTAMICIN [Suspect]
     Active Substance: GENTAMICIN
     Indication: Hodgkin^s disease recurrent
     Dosage: UNK, 2XIGEV REGIMEN
     Route: 065
  22. GENTAMICIN [Suspect]
     Active Substance: GENTAMICIN
     Indication: Hodgkin^s disease refractory
  23. VINCRISTINE [Suspect]
     Active Substance: VINCRISTINE
     Indication: Hodgkin^s disease refractory
     Dosage: UNK, 1XR-CHOP REGIMEN
     Route: 065
  24. VINCRISTINE [Suspect]
     Active Substance: VINCRISTINE
     Indication: Hodgkin^s disease recurrent
  25. DEXAMETHASONE [Suspect]
     Active Substance: DEXAMETHASONE
     Indication: Hodgkin^s disease refractory
     Dosage: UNK, 1XR-DHAP, 1XR-DHAOX REGIMEN
     Route: 065
  26. DEXAMETHASONE [Suspect]
     Active Substance: DEXAMETHASONE
     Indication: Hodgkin^s disease recurrent
  27. LORATADINE [Suspect]
     Active Substance: LORATADINE
     Indication: Hodgkin^s disease refractory
     Dosage: UNK, 5XR-CHOEP REGIMEN
     Route: 065
  28. LORATADINE [Suspect]
     Active Substance: LORATADINE
     Indication: Hodgkin^s disease recurrent
  29. PREDNISONE [Suspect]
     Active Substance: PREDNISONE
     Indication: Hodgkin^s disease refractory
     Dosage: UNK, 1XR-CHOP, 5XR-CHOEP, 2XIGEV REGIMEN
     Route: 065
  30. PREDNISONE [Suspect]
     Active Substance: PREDNISONE
     Indication: Hodgkin^s disease recurrent
  31. ETOPOSIDE [Suspect]
     Active Substance: ETOPOSIDE
     Indication: Product used for unknown indication
     Route: 065

REACTIONS (6)
  - Disease progression [Unknown]
  - Nephropathy toxic [Unknown]
  - Peripheral blood stem cell apheresis [Unknown]
  - Haematopoietic stem cell mobilisation [Unknown]
  - Pyrexia [Unknown]
  - Night sweats [Unknown]
